FAERS Safety Report 9615657 (Version 2)
Quarter: 2013Q4

REPORT INFORMATION
  Report Type: Spontaneous
  Country: US (occurrence: US)
  Receive Date: 20131011
  Receipt Date: 20131011
  Transmission Date: 20140711
  Serious: No
  Sender: FDA-Public Use
  Company Number: US-PURDUE-USA-2013-0099337

PATIENT
  Sex: Female

DRUGS (2)
  1. BUTRANS [Suspect]
     Indication: PAIN
     Dosage: 5 MCG/HR, UNK
     Route: 062
  2. BUTRANS [Suspect]
     Dosage: 10 MCG/HR, UNK
     Route: 062

REACTIONS (9)
  - Drug ineffective [Unknown]
  - Drug withdrawal syndrome [Unknown]
  - Product quality issue [Unknown]
  - Application site rash [Unknown]
  - Influenza like illness [Unknown]
  - Malaise [Unknown]
  - Myalgia [Unknown]
  - Abdominal discomfort [Unknown]
  - Nausea [Recovering/Resolving]
